FAERS Safety Report 11649687 (Version 3)
Quarter: 2021Q1

REPORT INFORMATION
  Report Type: Spontaneous
  Country: US (occurrence: US)
  Receive Date: 20151021
  Receipt Date: 20210309
  Transmission Date: 20210419
  Serious: Yes (Other)
  Sender: FDA-Public Use
  Company Number: US-PFIZER INC-2015345755

PATIENT
  Age: 63 Year
  Sex: Male
  Weight: 128 kg

DRUGS (10)
  1. NEURONTIN [Concomitant]
     Active Substance: GABAPENTIN
     Dosage: 300 MG, 3X/DAY
     Route: 048
  2. PRINZIDE ZESTORETIC [Concomitant]
     Dosage: 1 DF, DAILY ([LISINOPRIL 20MG]/[HYDROCHLOROTHIAZIDE 50MG], DAILY)
     Route: 048
  3. LYRICA [Suspect]
     Active Substance: PREGABALIN
     Indication: NEURALGIA
     Dosage: 75 MG, 3X/DAY
     Route: 048
  4. CLARITIN [Concomitant]
     Active Substance: LORATADINE
     Dosage: 10 MG, DAILY
     Route: 048
  5. PAXIL [Concomitant]
     Active Substance: PAROXETINE HYDROCHLORIDE
     Dosage: 20 MG, DAILY
     Route: 048
  6. PRAVACHOL [Concomitant]
     Active Substance: PRAVASTATIN SODIUM
     Dosage: 20 MG, DAILY
     Route: 048
  7. LYRICA [Suspect]
     Active Substance: PREGABALIN
     Indication: AUTISM SPECTRUM DISORDER
     Dosage: 50 MG, 3X/DAY (270)
     Route: 048
  8. GLUCOPHAGE [Concomitant]
     Active Substance: METFORMIN HYDROCHLORIDE
     Dosage: 850 MG, 2X/DAY (WITH MEAL)
     Route: 048
  9. ZANAFLEX [Concomitant]
     Active Substance: TIZANIDINE HYDROCHLORIDE
     Dosage: 4 MG, 2X/DAY
     Route: 048
  10. AMARYL [Concomitant]
     Active Substance: GLIMEPIRIDE
     Dosage: 2 MG, DAILY (WITH BREAKFAST)
     Route: 048

REACTIONS (19)
  - Dyspnoea [Unknown]
  - Haemorrhoidal haemorrhage [Unknown]
  - Abdominal distension [Unknown]
  - Dysphoria [Unknown]
  - Disturbance in attention [Unknown]
  - Body mass index increased [Unknown]
  - Visual acuity reduced [Unknown]
  - Anxiety [Unknown]
  - Headache [Unknown]
  - Visual impairment [Unknown]
  - Abdominal pain [Unknown]
  - Nervousness [Unknown]
  - Dizziness [Unknown]
  - Haematochezia [Unknown]
  - Anal haemorrhage [Unknown]
  - Hypertonic bladder [Unknown]
  - Asthma [Unknown]
  - Cough [Unknown]
  - Back pain [Unknown]
